FAERS Safety Report 4442154-7 (Version None)
Quarter: 2004Q3

REPORT INFORMATION
  Report Type: 
  Country: None (occurrence: None)
  Receive Date: 20040903
  Receipt Date: 20040722
  Transmission Date: 20050211
  Serious: Yes (Other)
  Sender: FDA-Public Use
  Company Number: 2004UW15453

PATIENT
  Age: 62 Year
  Sex: Female
  Weight: 78.9259 kg

DRUGS (4)
  1. CRESTOR [Suspect]
     Indication: HYPERCHOLESTEROLAEMIA
     Dosage: 10 MG QD PO
     Route: 048
  2. LOTENSIN [Concomitant]
  3. HYDROCHLOROTHIAZIDE [Concomitant]
  4. LEXAPRO [Concomitant]

REACTIONS (3)
  - CARDIAC FAILURE CONGESTIVE [None]
  - MUSCLE CRAMP [None]
  - MYALGIA [None]
